FAERS Safety Report 25034287 (Version 8)
Quarter: 2025Q3

REPORT INFORMATION
  Report Type: Spontaneous
  Country: US (occurrence: US)
  Receive Date: 20250304
  Receipt Date: 20250714
  Transmission Date: 20251020
  Serious: No
  Sender: SANOFI AVENTIS
  Company Number: US-SA-2025SA063544

PATIENT
  Age: 82 Year
  Sex: Male

DRUGS (3)
  1. DUPIXENT [Suspect]
     Active Substance: DUPILUMAB
     Indication: Eczema
     Route: 058
     Dates: start: 202501, end: 202501
  2. DUPIXENT [Suspect]
     Active Substance: DUPILUMAB
     Indication: Dermatitis
     Dosage: 300 MG, QOW
     Route: 058
     Dates: start: 2025
  3. PREDNISONE [Suspect]
     Active Substance: PREDNISONE

REACTIONS (14)
  - Oedema peripheral [Unknown]
  - Condition aggravated [Unknown]
  - Pain [Unknown]
  - Gait disturbance [Unknown]
  - Dermatitis [Recovering/Resolving]
  - Peripheral swelling [Recovering/Resolving]
  - Rash pruritic [Recovering/Resolving]
  - Pruritus [Not Recovered/Not Resolved]
  - Blister [Unknown]
  - Mobility decreased [Unknown]
  - Rebound eczema [Not Recovered/Not Resolved]
  - Rash pruritic [Not Recovered/Not Resolved]
  - Arthralgia [Unknown]
  - Product use in unapproved indication [Unknown]

NARRATIVE: CASE EVENT DATE: 20250101
